FAERS Safety Report 20890788 (Version 4)
Quarter: 2022Q3

REPORT INFORMATION
  Report Type: Report from Study
  Country: US (occurrence: US)
  Receive Date: 20220530
  Receipt Date: 20220816
  Transmission Date: 20221027
  Serious: Yes (Hospitalization)
  Sender: FDA-Public Use
  Company Number: US-TAKEDA-2022TUS035094

PATIENT
  Sex: Female
  Weight: 48 kg

DRUGS (3)
  1. PONATINIB [Suspect]
     Active Substance: PONATINIB
     Indication: Acute myeloid leukaemia
     Dosage: 45 MILLIGRAM, QD
     Route: 065
     Dates: start: 20220525
  2. PONATINIB [Suspect]
     Active Substance: PONATINIB
     Dosage: 30 MILLIGRAM, QD
     Route: 065
     Dates: start: 20220616
  3. BLINCYTO [Concomitant]
     Active Substance: BLINATUMOMAB
     Dosage: UNK
     Route: 065

REACTIONS (2)
  - Musculoskeletal discomfort [Unknown]
  - Off label use [Unknown]
